FAERS Safety Report 16367497 (Version 1)
Quarter: 2019Q2

REPORT INFORMATION
  Report Type: Spontaneous
  Country: US (occurrence: US)
  Receive Date: 20190529
  Receipt Date: 20190529
  Transmission Date: 20190711
  Serious: No
  Sender: FDA-Public Use
  Company Number: US-OTSUKA-2019_004008

PATIENT
  Age: 60 Year
  Sex: Male

DRUGS (1)
  1. TOLVAPTAN [Suspect]
     Active Substance: TOLVAPTAN
     Indication: CONGENITAL CYSTIC KIDNEY DISEASE
     Dosage: UNK (ESCALATING DOSE)
     Route: 065
     Dates: start: 2015, end: 2017

REACTIONS (4)
  - Micturition urgency [Unknown]
  - Disease progression [Unknown]
  - Malaise [Unknown]
  - Pollakiuria [Unknown]
